FAERS Safety Report 6207224-1 (Version None)
Quarter: 2009Q2

REPORT INFORMATION
  Report Type: 
  Country: None (occurrence: None)
  Receive Date: 20090528
  Receipt Date: 20090520
  Transmission Date: 20091009
  Serious: Yes (Other)
  Sender: FDA-Public Use
  Company Number: PHHY2009SE19269

PATIENT
  Sex: Female

DRUGS (1)
  1. LESCOL [Suspect]
     Indication: HYPERLIPIDAEMIA
     Dosage: UNK

REACTIONS (3)
  - MYOCARDIAL INFARCTION [None]
  - PALPITATIONS [None]
  - SYNCOPE [None]
